FAERS Safety Report 6504923-9 (Version None)
Quarter: 2009Q4

REPORT INFORMATION
  Report Type: 
  Country: None (occurrence: None)
  Receive Date: 20091218
  Receipt Date: 20091214
  Transmission Date: 20100525
  Serious: Yes (Disabling)
  Sender: FDA-Public Use
  Company Number: US-SANOFI-AVENTIS-2009SA009077

PATIENT
  Age: 60 Year
  Sex: Male

DRUGS (1)
  1. AMBIEN [Suspect]
     Indication: INSOMNIA
     Route: 048
     Dates: start: 20090101, end: 20090101

REACTIONS (6)
  - AGGRESSION [None]
  - AMNESIA [None]
  - ROAD TRAFFIC ACCIDENT [None]
  - SKIN LACERATION [None]
  - SOMNAMBULISM [None]
  - SPINAL FRACTURE [None]
